FAERS Safety Report 9511347 (Version 2)
Quarter: 2013Q3

REPORT INFORMATION
  Report Type: Report from Study
  Country: FR (occurrence: FR)
  Receive Date: 20130910
  Receipt Date: 20130910
  Transmission Date: 20140515
  Serious: Yes (Other)
  Sender: FDA-Public Use
  Company Number: FR-BAYER-2013-057157

PATIENT
  Age: 52 Year
  Sex: Female

DRUGS (4)
  1. REGORAFENIB [Suspect]
     Indication: COLORECTAL CANCER METASTATIC
     Dosage: 160 MG
     Dates: start: 20130415, end: 20130602
  2. REGORAFENIB [Suspect]
     Indication: COLORECTAL CANCER METASTATIC
     Dosage: 120 MG
     Dates: start: 20130615, end: 20130628
  3. FORLAX [Concomitant]
     Indication: CONSTIPATION
     Dosage: 1 DF, TID
     Dates: start: 20130415, end: 20130418
  4. DUROGESIC [Concomitant]
     Dosage: 50 ?G, UNK
     Dates: start: 20130405

REACTIONS (12)
  - Blister [Recovering/Resolving]
  - Blister [Not Recovered/Not Resolved]
  - Skin fissures [Not Recovered/Not Resolved]
  - Alopecia [Not Recovered/Not Resolved]
  - Tinnitus [Not Recovered/Not Resolved]
  - Palmar-plantar erythrodysaesthesia syndrome [Not Recovered/Not Resolved]
  - Blister [Not Recovered/Not Resolved]
  - Skin ulcer [Not Recovered/Not Resolved]
  - Mixed deafness [Not Recovered/Not Resolved]
  - Cough [Not Recovered/Not Resolved]
  - Palmar-plantar erythrodysaesthesia syndrome [Not Recovered/Not Resolved]
  - Colorectal cancer metastatic [None]
